FAERS Safety Report 7018133-2 (Version None)
Quarter: 2010Q3

REPORT INFORMATION
  Report Type: 
  Country: None (occurrence: None)
  Receive Date: 20100928
  Receipt Date: 20100920
  Transmission Date: 20110219
  Serious: Yes (Hospitalization)
  Sender: FDA-Public Use
  Company Number: US-ROCHE-726881

PATIENT
  Sex: Female
  Weight: 87.5 kg

DRUGS (4)
  1. PEGASYS [Suspect]
     Indication: HEPATITIS C
     Route: 058
     Dates: start: 20100827
  2. RIBASPHERE [Suspect]
     Indication: HEPATITIS C
     Route: 048
     Dates: start: 20100827
  3. BENICAR [Concomitant]
  4. SPIRONOLACTONE [Concomitant]

REACTIONS (4)
  - DERMATITIS [None]
  - DYSPNOEA [None]
  - PROCEDURAL COMPLICATION [None]
  - PULMONARY OEDEMA [None]
